FAERS Safety Report 6135724-1 (Version None)
Quarter: 2009Q1

REPORT INFORMATION
  Report Type: 
  Country: None (occurrence: None)
  Receive Date: 20090327
  Receipt Date: 20090324
  Transmission Date: 20090719
  Serious: Yes (Other)
  Sender: FDA-Public Use
  Company Number: GB-PFIZER INC-2009187322

PATIENT

DRUGS (4)
  1. CELEBREX [Suspect]
     Indication: ARTHRITIS
     Dosage: 100 MG, 1X/DAY
     Route: 048
     Dates: start: 20070730, end: 20090224
  2. LOSARTAN POTASSIUM [Concomitant]
     Route: 048
     Dates: start: 20070823
  3. ALENDRONIC ACID [Concomitant]
     Route: 048
     Dates: start: 20070814
  4. ADCAL-D3 [Concomitant]
     Route: 048
     Dates: start: 20070814

REACTIONS (3)
  - DYSPNOEA EXERTIONAL [None]
  - MITRAL VALVE DISEASE [None]
  - MITRAL VALVE INCOMPETENCE [None]
